FAERS Safety Report 8569164-2 (Version None)
Quarter: 2012Q3

REPORT INFORMATION
  Report Type: 
  Country: None (occurrence: None)
  Receive Date: 20120803
  Receipt Date: 20120530
  Transmission Date: 20120928
  Serious: No
  Sender: FDA-Public Use
  Company Number: US-ABBOTT-12P-163-0940514-00

PATIENT
  Sex: Female
  Weight: 84.444 kg

DRUGS (8)
  1. METOPROLOL TARTRATE [Concomitant]
     Indication: PRODUCT USED FOR UNKNOWN INDICATION
     Dosage: DAILY
     Route: 048
  2. NIASPAN [Suspect]
     Indication: PRODUCT USED FOR UNKNOWN INDICATION
     Dosage: AT BEDTIME
     Route: 048
  3. LISINOPRIL AND HYDROCHLOROTHIAZIDE [Concomitant]
     Indication: PRODUCT USED FOR UNKNOWN INDICATION
     Dosage: 20/12.5MG DAILY
     Route: 048
  4. POTASSIUM CHLORIDE [Concomitant]
     Indication: PRODUCT USED FOR UNKNOWN INDICATION
     Dosage: DAILY
     Route: 048
  5. NIASPAN [Suspect]
     Dosage: PO Q HS
     Route: 048
  6. NEXIUM [Concomitant]
     Indication: PRODUCT USED FOR UNKNOWN INDICATION
     Dosage: IN THE MORNING
     Route: 048
  7. ASPIRIN [Concomitant]
     Indication: PRURITUS
     Dosage: DAILY
     Route: 048
  8. CELEBREX [Concomitant]
     Indication: ARTHRALGIA
     Route: 048

REACTIONS (3)
  - FLUSHING [None]
  - PRURITUS [None]
  - LABORATORY TEST ABNORMAL [None]
